FAERS Safety Report 9707947 (Version 1)
Quarter: 2013Q4

REPORT INFORMATION
  Report Type: Spontaneous
  Country: US (occurrence: None)
  Receive Date: 20131122
  Receipt Date: 20131122
  Transmission Date: 20140711
  Serious: Yes (Hospitalization)
  Sender: FDA-Public Use
  Company Number: None

PATIENT
  Age: 68 Year
  Sex: Male
  Weight: 66.85 kg

DRUGS (5)
  1. CARBOPLATIN [Suspect]
  2. CETUXIMAB (ERBITUX) (714692) [Suspect]
  3. PACLITAXEL (TAXOL) [Suspect]
  4. LISINOPRIL [Concomitant]
  5. PROPRANOLOL [Concomitant]

REACTIONS (6)
  - Dizziness [None]
  - Asthenia [None]
  - Lethargy [None]
  - Hypophagia [None]
  - Hypotension [None]
  - Asthenia [None]
